FAERS Safety Report 26045998 (Version 1)
Quarter: 2025Q4

REPORT INFORMATION
  Report Type: Spontaneous
  Country: AU (occurrence: AU)
  Receive Date: 20251114
  Receipt Date: 20251114
  Transmission Date: 20260117
  Serious: Yes (Death, Hospitalization)
  Sender: RANBAXY
  Company Number: AU-SUN PHARMACEUTICAL INDUSTRIES LTD-2025R1-536092

PATIENT
  Age: 72 Year
  Sex: Female

DRUGS (44)
  1. LENALIDOMIDE [Suspect]
     Active Substance: LENALIDOMIDE
     Indication: Plasma cell myeloma
     Dosage: 25 MILLIGRAM
     Route: 048
     Dates: start: 20250611, end: 20250611
  2. DEXAMETHASONE [Suspect]
     Active Substance: DEXAMETHASONE
     Indication: Plasma cell myeloma
     Dosage: 20 MILLIGRAM
     Route: 048
     Dates: start: 20250611, end: 20250709
  3. DARATUMUMAB [Suspect]
     Active Substance: DARATUMUMAB
     Indication: Plasma cell myeloma
     Dosage: 15 MILLILITER
     Route: 058
     Dates: start: 20250513, end: 20250709
  4. TECLISTAMAB [Suspect]
     Active Substance: TECLISTAMAB
     Indication: Plasma cell myeloma
     Dosage: 0.2 MILLILITER
     Route: 058
     Dates: start: 20250514, end: 20250709
  5. ALBUMIN HUMAN [Concomitant]
     Active Substance: ALBUMIN HUMAN
     Indication: Hypoalbuminaemia
     Dosage: 250 MILLILITER
     Route: 042
     Dates: start: 20250725, end: 20250725
  6. ALBUMIN HUMAN [Concomitant]
     Active Substance: ALBUMIN HUMAN
     Dosage: 100 MILLILITER
     Route: 042
     Dates: start: 20250725, end: 20250725
  7. PRIVIGEN [Concomitant]
     Active Substance: HUMAN IMMUNOGLOBULIN G
     Indication: Influenza
     Dosage: 25 GRAM
     Route: 042
     Dates: start: 20250728, end: 20250728
  8. PRIVIGEN [Concomitant]
     Active Substance: HUMAN IMMUNOGLOBULIN G
     Dosage: 25 GRAM
     Route: 042
     Dates: start: 20250731, end: 20250731
  9. AMOXICILLIN [Concomitant]
     Active Substance: AMOXICILLIN
     Indication: Influenza
     Dosage: 1 GRAM
     Route: 048
     Dates: start: 20250720, end: 20250720
  10. ANIDULAFUNGIN [Concomitant]
     Active Substance: ANIDULAFUNGIN
     Indication: Candida infection
     Dosage: 200 MILLIGRAM
     Route: 042
     Dates: start: 20250729, end: 20250729
  11. ANIDULAFUNGIN [Concomitant]
     Active Substance: ANIDULAFUNGIN
     Dosage: 100 MILLIGRAM
     Route: 042
     Dates: start: 20250730, end: 20250730
  12. ASPIRIN [Concomitant]
     Active Substance: ASPIRIN
     Indication: Thrombosis prophylaxis
     Dosage: 100 MILLIGRAM
     Route: 048
     Dates: start: 20250611
  13. ATORVASTATIN [Concomitant]
     Active Substance: ATORVASTATIN
     Indication: Hypercholesterolaemia
     Dosage: 40 MILLIGRAM
     Route: 048
     Dates: start: 20250721, end: 20250724
  14. ATORVASTATIN [Concomitant]
     Active Substance: ATORVASTATIN
     Dosage: 40 MILLIGRAM
     Route: 048
     Dates: start: 20250724, end: 20250802
  15. AZITHROMYCIN [Concomitant]
     Active Substance: AZITHROMYCIN
     Indication: Influenza
     Dosage: 500 MILLIGRAM
     Route: 042
     Dates: start: 20250721, end: 20250723
  16. CEFTRIAXONE [Concomitant]
     Active Substance: CEFTRIAXONE
     Indication: Influenza
     Dosage: 2 GRAM
     Route: 042
     Dates: start: 20250721, end: 20250721
  17. CHOLECALCIFEROL [Concomitant]
     Active Substance: CHOLECALCIFEROL
     Indication: Routine health maintenance
     Dosage: UNK(1000 INTERNATIONAL UNIT)
     Route: 048
     Dates: start: 20250515, end: 20250515
  18. CHOLECALCIFEROL [Concomitant]
     Active Substance: CHOLECALCIFEROL
     Dosage: UNK(1000 INTERNATIONAL UNIT)
     Route: 048
     Dates: start: 20250725, end: 20250725
  19. DOXYCYCLINE [Concomitant]
     Active Substance: DOXYCYCLINE
     Indication: Influenza
     Dosage: 100 MILLIGRAM
     Route: 048
     Dates: start: 20250720, end: 20250721
  20. FENTANYL [Concomitant]
     Active Substance: FENTANYL
     Indication: Influenza
     Dosage: 50 MILLILITER
     Route: 042
     Dates: start: 20250725, end: 20250728
  21. FUROSEMIDE [Concomitant]
     Active Substance: FUROSEMIDE
     Indication: Oedema peripheral
     Dosage: 20 MILLIGRAM
     Route: 042
     Dates: start: 20250726, end: 20250726
  22. FUROSEMIDE [Concomitant]
     Active Substance: FUROSEMIDE
     Dosage: 20 MILLIGRAM
     Route: 042
     Dates: start: 20250730, end: 20250730
  23. HEPARIN [Concomitant]
     Active Substance: HEPARIN SODIUM
     Indication: Thrombosis prophylaxis
     Dosage: UNK
     Route: 058
     Dates: start: 20250725, end: 20250803
  24. HYDROCHLOROTHIAZIDE [Concomitant]
     Active Substance: HYDROCHLOROTHIAZIDE
     Indication: Oedema peripheral
     Dosage: 25 MICROGRAM
     Route: 065
     Dates: start: 20250727, end: 20250803
  25. HYDROCORTISONE [Concomitant]
     Active Substance: HYDROCORTISONE
     Indication: Influenza
     Dosage: 200 MILLIGRAM
     Route: 042
     Dates: start: 20250724, end: 20250724
  26. HYDROCORTISONE [Concomitant]
     Active Substance: HYDROCORTISONE
     Dosage: 1000 MILLIGRAM
     Route: 042
     Dates: start: 20250725, end: 20250725
  27. HYDROCORTISONE [Concomitant]
     Active Substance: HYDROCORTISONE
     Dosage: 50 MILLIGRAM
     Route: 042
     Dates: start: 20250725, end: 20250725
  28. HYDROCORTISONE [Concomitant]
     Active Substance: HYDROCORTISONE
     Dosage: 200 MILLIGRAM
     Route: 042
     Dates: start: 20250729, end: 20250731
  29. MEROPENEM [Concomitant]
     Active Substance: MEROPENEM
     Indication: Influenza
     Dosage: 1 GRAM
     Route: 042
     Dates: start: 20250724, end: 20250724
  30. MEROPENEM [Concomitant]
     Active Substance: MEROPENEM
     Dosage: 1 GRAM
     Route: 042
     Dates: start: 20250725, end: 20250729
  31. ONDANSETRON [Concomitant]
     Active Substance: ONDANSETRON
     Indication: Nausea
     Dosage: UNK
     Route: 048
     Dates: start: 20250625, end: 20250724
  32. ACETAMINOPHEN [Concomitant]
     Active Substance: ACETAMINOPHEN
     Indication: Arthralgia
     Dosage: UNK
     Route: 048
     Dates: start: 20250518, end: 20250724
  33. POTASSIUM CHLORIDE [Concomitant]
     Active Substance: POTASSIUM CHLORIDE
     Indication: Hypokalaemia
     Dosage: UNK
     Route: 048
     Dates: start: 20250723, end: 20250723
  34. POTASSIUM [Concomitant]
     Active Substance: POTASSIUM
     Indication: Hypokalaemia
     Dosage: 15 MILLILITER
     Route: 042
     Dates: start: 20250727, end: 20250803
  35. POTASSIUM [Concomitant]
     Active Substance: POTASSIUM
     Dosage: 15 MILLILITER
     Route: 042
     Dates: start: 20250725, end: 20250802
  36. PROPOFOL [Concomitant]
     Active Substance: PROPOFOL
     Indication: Influenza
     Dosage: 100 MILLILITER
     Route: 042
     Dates: start: 20250725, end: 20250803
  37. SODIUM CHLORIDE [Concomitant]
     Active Substance: SODIUM CHLORIDE
     Indication: Influenza
     Dosage: 1 LITER
     Route: 042
     Dates: start: 20250720
  38. SODIUM CHLORIDE [Concomitant]
     Active Substance: SODIUM CHLORIDE
     Dosage: 500 LITER
     Route: 042
     Dates: start: 20250729, end: 20250729
  39. VALACYCLOVIR HYDROCHLORIDE [Concomitant]
     Active Substance: VALACYCLOVIR HYDROCHLORIDE
     Indication: Prophylaxis
     Dosage: 500 MILLIGRAM
     Route: 048
     Dates: start: 20250513, end: 20250724
  40. VALACYCLOVIR HYDROCHLORIDE [Concomitant]
     Active Substance: VALACYCLOVIR HYDROCHLORIDE
     Dosage: 500 MILLIGRAM
     Route: 048
     Dates: start: 20250725, end: 20250803
  41. VANCOMYCIN [Concomitant]
     Active Substance: VANCOMYCIN
     Indication: Influenza
     Dosage: 1.75 GRAM
     Route: 042
     Dates: start: 20250724, end: 20250724
  42. VANCOMYCIN [Concomitant]
     Active Substance: VANCOMYCIN
     Dosage: 750 MILLIGRAM
     Route: 042
     Dates: start: 20250727, end: 20250728
  43. VANCOMYCIN [Concomitant]
     Active Substance: VANCOMYCIN
     Dosage: 1 GRAM
     Route: 048
     Dates: start: 20250725, end: 20250728
  44. ZOLEDRONIC ACID [Concomitant]
     Active Substance: ZOLEDRONIC ACID
     Indication: Plasma cell myeloma
     Dosage: 4 MILLIGRAM
     Route: 042
     Dates: start: 20250521

REACTIONS (1)
  - Influenza [Fatal]
